FAERS Safety Report 6306062-9 (Version None)
Quarter: 2009Q3

REPORT INFORMATION
  Report Type: 
  Country: None (occurrence: None)
  Receive Date: 20090812
  Receipt Date: 20090803
  Transmission Date: 20100115
  Serious: Yes (Hospitalization)
  Sender: FDA-Public Use
  Company Number: SE-JNJFOC-20090800161

PATIENT
  Age: 43 Year
  Sex: Female

DRUGS (4)
  1. CONCERTA [Suspect]
     Route: 048
  2. CONCERTA [Suspect]
     Indication: ATTENTION DEFICIT/HYPERACTIVITY DISORDER
     Dosage: 1.5 YEARS AGO
     Route: 048
  3. SOBRIL [Concomitant]
     Route: 065
  4. IMOVAN [Concomitant]
     Route: 065

REACTIONS (3)
  - DRUG EFFECT DECREASED [None]
  - OVERDOSE [None]
  - WITHDRAWAL SYNDROME [None]
